FAERS Safety Report 8850862 (Version 2)
Quarter: 2012Q4

REPORT INFORMATION
  Report Type: 
  Country: US (occurrence: US)
  Receive Date: 20121019
  Receipt Date: 20121126
  Transmission Date: 20130627
  Serious: Yes (Hospitalization, Other)
  Sender: FDA-Public Use
  Company Number: US-PFIZER INC-2012259292

PATIENT
  Age: 56 Year
  Sex: Female

DRUGS (3)
  1. LYRICA [Suspect]
     Indication: NERVE PAIN
     Dosage: 150 mg, a day
  2. LYRICA [Suspect]
     Indication: FIBROMYALGIA
     Dosage: 300 mg, UNK
  3. AMBIEN [Concomitant]
     Dosage: UNK

REACTIONS (10)
  - Accident [Unknown]
  - Rib fracture [Unknown]
  - Traumatic lung injury [Unknown]
  - Muscle injury [Unknown]
  - Spinal fracture [Unknown]
  - Ankle fracture [Unknown]
  - Abasia [Unknown]
  - Neuralgia [Unknown]
  - Coma [Recovered/Resolved]
  - Withdrawal syndrome [Unknown]
